FAERS Safety Report 7332605-2 (Version None)
Quarter: 2011Q1

REPORT INFORMATION
  Report Type: 
  Country: None (occurrence: None)
  Receive Date: 20110304
  Receipt Date: 20110228
  Transmission Date: 20110831
  Serious: Yes (Other)
  Sender: FDA-Public Use
  Company Number: ES-PFIZER INC-2011042927

PATIENT
  Age: 75 Year
  Sex: Male

DRUGS (1)
  1. VARENICLINE TARTRATE [Suspect]

REACTIONS (1)
  - ILEUS PARALYTIC [None]
